FAERS Safety Report 9008155 (Version 2)
Quarter: 2013Q2

REPORT INFORMATION
  Report Type: Spontaneous
  Country: US (occurrence: None)
  Receive Date: 20120518
  Receipt Date: 20120820
  Transmission Date: 20140414
  Serious: No
  Sender: FDA-Public Use
  Company Number: 1000029493

PATIENT
  Age: 84 Year
  Sex: Female

DRUGS (4)
  1. VIIBRYD [Suspect]
     Indication: DEPRESSION
     Dosage: 10 MG  (10 MG, 1 IN 1 D)?  /  / 2012 -  /  / 2012
     Dates: start: 2012, end: 2012
  2. LIPITOR (ATORVASTATIN CALCIUM) (ATORVASTATIN CALCIUM) [Concomitant]
  3. DILTIAZEM (DILTIAZEM HYDROCHLORIDE) (DILTIAZEM HYDROCHLORIDE) [Concomitant]
  4. DIOVAN (VALSARTAN) (VALSARTAN) [Concomitant]

REACTIONS (3)
  - Feeling abnormal [None]
  - Hypersomnia [None]
  - Hallucination [None]
